FAERS Safety Report 9684617 (Version 1)
Quarter: 2013Q4

REPORT INFORMATION
  Report Type: Report from Study
  Country: DE (occurrence: DE)
  Receive Date: 20131112
  Receipt Date: 20131112
  Transmission Date: 20140711
  Serious: Yes (Death, Life-Threatening, Hospitalization, Other)
  Sender: FDA-Public Use
  Company Number: DE-TEVA-443224ISR

PATIENT
  Age: 73 Year
  Sex: Female
  Weight: 42 kg

DRUGS (2)
  1. FLUDARABINE MEDAC PCH [Suspect]
     Indication: CHRONIC LYMPHOCYTIC LEUKAEMIA
     Route: 042
     Dates: start: 20130121, end: 20130122
  2. RITUXIMAB [Concomitant]
     Indication: CHRONIC LYMPHOCYTIC LEUKAEMIA
     Route: 042
     Dates: start: 20130121, end: 20130121

REACTIONS (4)
  - Neutropenic sepsis [Fatal]
  - Gastroenteritis clostridial [Fatal]
  - Hepatic failure [Unknown]
  - Metabolic acidosis [Unknown]
